FAERS Safety Report 11945899 (Version 3)
Quarter: 2018Q1

REPORT INFORMATION
  Report Type: Report from Study
  Country: US (occurrence: US)
  Receive Date: 20160125
  Receipt Date: 20180227
  Transmission Date: 20180508
  Serious: Yes (Hospitalization, Other)
  Sender: FDA-Public Use
  Company Number: US-JNJFOC-20160117000

PATIENT
  Age: 61 Year
  Sex: Male

DRUGS (32)
  1. IMBRUVICA [Suspect]
     Active Substance: IBRUTINIB
     Indication: CHRONIC LYMPHOCYTIC LEUKAEMIA
     Route: 048
     Dates: start: 20140819, end: 20160913
  2. CIALIS [Concomitant]
     Active Substance: TADALAFIL
  3. HYDRALAZINE [Concomitant]
     Active Substance: HYDRALAZINE HYDROCHLORIDE
  4. CENTRUM SILVER [Concomitant]
     Active Substance: MINERALS\VITAMINS
  5. LEVOTHYROXINE. [Concomitant]
     Active Substance: LEVOTHYROXINE
     Indication: THYROID DISORDER
     Dates: start: 201707
  6. TOPROL XL [Concomitant]
     Active Substance: METOPROLOL SUCCINATE
  7. AMIODARONE [Concomitant]
     Active Substance: AMIODARONE
     Indication: CARDIAC DISORDER
  8. TAMSULOSIN HYDROCHLORIDE. [Concomitant]
     Active Substance: TAMSULOSIN HYDROCHLORIDE
  9. XANAX [Concomitant]
     Active Substance: ALPRAZOLAM
     Dosage: 1.0 MG, 1-1/2 MG DAILY
  10. CEFTIN [Concomitant]
     Active Substance: CEFUROXIME AXETIL
  11. CALCIUM [Concomitant]
     Active Substance: CALCIUM
  12. IMBRUVICA [Suspect]
     Active Substance: IBRUTINIB
     Indication: CHRONIC LYMPHOCYTIC LEUKAEMIA
     Route: 048
  13. MOBIC [Concomitant]
     Active Substance: MELOXICAM
  14. ATARAX [Concomitant]
     Active Substance: HYDROXYZINE HYDROCHLORIDE
  15. PROCHLORPERAZINE EDISYLATE. [Concomitant]
     Active Substance: PROCHLORPERAZINE EDISYLATE
  16. VITAMINS NOS [Concomitant]
     Active Substance: VITAMINS
  17. ASPIRIN. [Concomitant]
     Active Substance: ASPIRIN
  18. TYLENOL [Concomitant]
     Active Substance: ACETAMINOPHEN
  19. BENADRYL [Concomitant]
     Active Substance: DIPHENHYDRAMINE HYDROCHLORIDE
  20. ZOFRAN [Concomitant]
     Active Substance: ONDANSETRON HYDROCHLORIDE
  21. MAGNESIUM [Concomitant]
     Active Substance: MAGNESIUM
  22. RAPAFLO [Concomitant]
     Active Substance: SILODOSIN
  23. ZINC. [Concomitant]
     Active Substance: ZINC
  24. ULORIC [Concomitant]
     Active Substance: FEBUXOSTAT
  25. ZOLOFT [Concomitant]
     Active Substance: SERTRALINE HYDROCHLORIDE
  26. ANDROGEL [Concomitant]
     Active Substance: TESTOSTERONE
  27. PROCTOZONE HC [Concomitant]
     Active Substance: HYDROCORTISONE
  28. ATIVAN [Concomitant]
     Active Substance: LORAZEPAM
  29. IMBRUVICA [Suspect]
     Active Substance: IBRUTINIB
     Indication: CHRONIC LYMPHOCYTIC LEUKAEMIA
     Route: 048
     Dates: start: 20171221, end: 20180121
  30. ALLOPURINOL. [Concomitant]
     Active Substance: ALLOPURINOL
     Indication: GOUT
     Route: 065
  31. MINERALS [Concomitant]
     Active Substance: MINERALS
  32. VALTREX [Concomitant]
     Active Substance: VALACYCLOVIR HYDROCHLORIDE
     Indication: PROPHYLAXIS

REACTIONS (9)
  - Incorrect dose administered [Recovered/Resolved]
  - Off label use [Recovered/Resolved]
  - Atrial fibrillation [Not Recovered/Not Resolved]
  - Blood pressure decreased [Recovered/Resolved]
  - Weight decreased [Not Recovered/Not Resolved]
  - Dehydration [Unknown]
  - Infection [Unknown]
  - Loss of consciousness [Recovered/Resolved]
  - Thyroid hormones decreased [Unknown]

NARRATIVE: CASE EVENT DATE: 20160401
